FAERS Safety Report 10393540 (Version 4)
Quarter: 2015Q1

REPORT INFORMATION
  Report Type: Report from Study
  Country: US (occurrence: US)
  Receive Date: 20140819
  Receipt Date: 20150205
  Transmission Date: 20150720
  Serious: Yes (Other)
  Sender: FDA-Public Use
  Company Number: US-SA-2014SA108777

PATIENT
  Age: 57 Year
  Sex: Female

DRUGS (1)
  1. AUBAGIO [Suspect]
     Active Substance: TERIFLUNOMIDE
     Indication: MULTIPLE SCLEROSIS
     Route: 048
     Dates: start: 20130516

REACTIONS (9)
  - Pneumonia [Unknown]
  - Hand fracture [Unknown]
  - Oxygen saturation decreased [Unknown]
  - Nasopharyngitis [Recovering/Resolving]
  - Head discomfort [Unknown]
  - Drug dose omission [Unknown]
  - Insomnia [Recovered/Resolved]
  - Chills [Recovering/Resolving]
  - Alopecia [Recovered/Resolved]

NARRATIVE: CASE EVENT DATE: 201501
